FAERS Safety Report 6944906-8 (Version None)
Quarter: 2010Q3

REPORT INFORMATION
  Report Type: 
  Country: None (occurrence: None)
  Receive Date: 20100827
  Receipt Date: 20100824
  Transmission Date: 20110219
  Serious: Yes (Death, Other)
  Sender: FDA-Public Use
  Company Number: BR-BAYER-201017113LA

PATIENT
  Age: 60 Year
  Sex: Male

DRUGS (2)
  1. NEXAVAR [Suspect]
     Indication: HEPATIC NEOPLASM MALIGNANT
     Dosage: 2 TABS A DAY
     Route: 048
     Dates: start: 20100501, end: 20100612
  2. LASIX [Concomitant]
     Indication: DIURETIC THERAPY

REACTIONS (2)
  - HEPATIC FAILURE [None]
  - HEPATIC NEOPLASM [None]
